FAERS Safety Report 13436303 (Version 1)
Quarter: 2017Q2

REPORT INFORMATION
  Report Type: Spontaneous
  Country: US (occurrence: US)
  Receive Date: 20170412
  Receipt Date: 20170412
  Transmission Date: 20170830
  Serious: Yes (Hospitalization)
  Sender: FDA-Public Use
  Company Number: None

PATIENT
  Age: 86 Year
  Sex: Male

DRUGS (7)
  1. NEUPOGEN [Concomitant]
     Active Substance: FILGRASTIM
  2. WARFARIN [Concomitant]
     Active Substance: WARFARIN
  3. PROCRIT [Concomitant]
     Active Substance: ERYTHROPOIETIN
  4. AMIODARONE [Concomitant]
     Active Substance: AMIODARONE
  5. FUROSEMIDE. [Concomitant]
     Active Substance: FUROSEMIDE
  6. EXJADE [Suspect]
     Active Substance: DEFERASIROX
     Indication: BONE DENSITY ABNORMAL
     Route: 048
     Dates: start: 20170301
  7. METPOROLOL [Concomitant]

REACTIONS (1)
  - Hospitalisation [None]

NARRATIVE: CASE EVENT DATE: 20170328
